FAERS Safety Report 5830865-8 (Version None)
Quarter: 2008Q3

REPORT INFORMATION
  Report Type: 
  Country: None (occurrence: None)
  Receive Date: 20080801
  Receipt Date: 20080108
  Transmission Date: 20090109
  Serious: No
  Sender: FDA-Public Use
  Company Number: US-BRISTOL-MYERS SQUIBB COMPANY-14034565

PATIENT
  Age: 46 Year
  Sex: Male

DRUGS (8)
  1. COUMADIN [Suspect]
     Route: 048
     Dates: start: 20071221
  2. NITROSTAT [Concomitant]
  3. LIPITOR [Concomitant]
  4. METOPROLOL [Concomitant]
  5. LISINOPRIL [Concomitant]
  6. HYDROCHLOROTHIAZIDE [Concomitant]
  7. CLONIDINE [Concomitant]
  8. DIOVAN [Concomitant]

REACTIONS (1)
  - RASH PAPULAR [None]
